FAERS Safety Report 6664247-6 (Version None)
Quarter: 2010Q2

REPORT INFORMATION
  Report Type: 
  Country: None (occurrence: None)
  Receive Date: 20100401
  Receipt Date: 20100322
  Transmission Date: 20101027
  Serious: Yes (Hospitalization, Other)
  Sender: FDA-Public Use
  Company Number: PHHY2010CA14210

PATIENT
  Sex: Male

DRUGS (6)
  1. ALISKIREN ALI+ [Suspect]
     Indication: HYPERTENSION
     Dosage: 150 MG
     Route: 048
     Dates: start: 20091208, end: 20100306
  2. NORVASC [Concomitant]
     Dosage: UNK
     Route: 065
     Dates: end: 20100306
  3. TYLENOL-500 [Concomitant]
     Dosage: 500 MG, FOR 4 HOURS
     Route: 065
     Dates: start: 20100122, end: 20100221
  4. TYLENOL-500 [Concomitant]
     Dosage: EVERY 4 HOURS IN THE EVENING
     Route: 065
     Dates: start: 20100222
  5. CALCIUM CHANNEL BLOCKERS [Concomitant]
     Dosage: UNK
     Route: 065
     Dates: start: 20100301
  6. NSAID'S [Concomitant]

REACTIONS (5)
  - CONDITION AGGRAVATED [None]
  - DYSPHAGIA [None]
  - LIP SWELLING [None]
  - PHARYNGEAL OEDEMA [None]
  - PRURITUS [None]
